FAERS Safety Report 5359894-8 (Version None)
Quarter: 2007Q2

REPORT INFORMATION
  Report Type: 
  Country: None (occurrence: None)
  Receive Date: 20070531
  Receipt Date: 20060420
  Transmission Date: 20071010
  Serious: Yes (Hospitalization)
  Sender: FDA-Public Use
  Company Number: 007225

PATIENT
  Age: 40 Year
  Sex: Female
  Weight: 63.5 kg

DRUGS (2)
  1. AYGESTIN [Suspect]
     Indication: ENDOMETRIOSIS
     Dosage: 3 TABLET, QD, ORAL
     Route: 048
     Dates: start: 20041001, end: 20060417
  2. LUPRON [Concomitant]

REACTIONS (2)
  - CHEST PAIN [None]
  - MYOCARDIAL INFARCTION [None]
